FAERS Safety Report 7478697-1 (Version None)
Quarter: 2011Q2

REPORT INFORMATION
  Report Type: 
  Country: None (occurrence: None)
  Receive Date: 20110513
  Receipt Date: 20110505
  Transmission Date: 20111010
  Serious: Yes (Other)
  Sender: FDA-Public Use
  Company Number: GB-TEVA-280912ISR

PATIENT
  Age: 60 Year
  Sex: Male
  Weight: 90 kg

DRUGS (2)
  1. DICLOFENAC SODIUM [Suspect]
     Indication: RHEUMATOID ARTHRITIS
  2. SULFASALAZINE [Suspect]
     Indication: RHEUMATOID ARTHRITIS

REACTIONS (6)
  - C-REACTIVE PROTEIN INCREASED [None]
  - RED BLOOD CELL SEDIMENTATION RATE INCREASED [None]
  - SYNOVITIS [None]
  - DRUG RESISTANCE [None]
  - RHEUMATOID ARTHRITIS [None]
  - ARTHROPATHY [None]
